FAERS Safety Report 16872246 (Version 1)
Quarter: 2019Q4

REPORT INFORMATION
  Report Type: Spontaneous
  Country: US (occurrence: US)
  Receive Date: 20190807
  Receipt Date: 20190807
  Transmission Date: 20200122
  Serious: Yes (Hospitalization)
  Sender: FDA-Public Use
  Company Number: None

PATIENT
  Age: 75 Year
  Sex: Male
  Weight: 97.98 kg

DRUGS (1)
  1. APIXABAN [Suspect]
     Active Substance: APIXABAN
     Indication: ATRIAL FIBRILLATION
     Route: 048
     Dates: start: 20190326

REACTIONS (11)
  - Haematochezia [None]
  - Heart rate increased [None]
  - Body temperature increased [None]
  - Haemoglobin decreased [None]
  - Platelet count decreased [None]
  - Melaena [None]
  - Asthenia [None]
  - Large intestine polyp [None]
  - Packed red blood cell transfusion [None]
  - Dyspnoea [None]
  - Platelet transfusion [None]

NARRATIVE: CASE EVENT DATE: 20190509
